FAERS Safety Report 8532995-9 (Version None)
Quarter: 2012Q3

REPORT INFORMATION
  Report Type: 
  Country: None (occurrence: None)
  Receive Date: 20120724
  Receipt Date: 20120716
  Transmission Date: 20120928
  Serious: Yes (Hospitalization)
  Sender: FDA-Public Use
  Company Number: US-NOVOPROD-349596

PATIENT
  Age: 15 Year
  Sex: Female
  Weight: 34.467 kg

DRUGS (3)
  1. NORDITROPIN FLEXPRO [Suspect]
     Indication: GROWTH HORMONE DEFICIENCY
     Dosage: 2.0 MG, QD
     Route: 058
     Dates: start: 20120324, end: 20120331
  2. NORDITROPIN FLEXPRO [Suspect]
     Dosage: 2.0 MG, QD
     Route: 058
     Dates: start: 20120417
  3. VIVELLE [Concomitant]
     Indication: PRODUCT USED FOR UNKNOWN INDICATION
     Dosage: 0.025 MG, OVERNIGHT AND ALL DAY, BIW
     Route: 062

REACTIONS (2)
  - LOBAR PNEUMONIA [None]
  - URTICARIA [None]
